FAERS Safety Report 19181417 (Version 3)
Quarter: 2022Q3

REPORT INFORMATION
  Report Type: Spontaneous
  Country: CA (occurrence: CA)
  Receive Date: 20210426
  Receipt Date: 20220715
  Transmission Date: 20221026
  Serious: Yes (Hospitalization, Other)
  Sender: FDA-Public Use
  Company Number: CA-MUNDIPHARMA RESEARCH LIMITED-CAN-2021-0012468

PATIENT
  Age: 60 Year
  Sex: Female

DRUGS (21)
  1. THEOPHYLLINE ANHYDROUS [Suspect]
     Active Substance: THEOPHYLLINE ANHYDROUS
     Indication: Product used for unknown indication
     Dosage: 300 MG, DAILY (1 EVERY 1 DAYS)
     Route: 065
  2. THEOPHYLLINE ANHYDROUS [Suspect]
     Active Substance: THEOPHYLLINE ANHYDROUS
     Dosage: 300 MG, DAILY (1 EVERY 1 DAYS)
     Route: 065
  3. FLUTICASONE PROPIONATE\SALMETEROL XINAFOATE [Suspect]
     Active Substance: FLUTICASONE PROPIONATE\SALMETEROL XINAFOATE
     Indication: Product used for unknown indication
     Dosage: 2 DF, BID (2 EVERY 1 DAYS)
     Route: 065
  4. OMALIZUMAB [Suspect]
     Active Substance: OMALIZUMAB
     Indication: Product used for unknown indication
     Dosage: UNK
     Route: 058
  5. TERBUTALINE SULFATE [Suspect]
     Active Substance: TERBUTALINE SULFATE
     Indication: Prophylaxis
     Dosage: UNK
     Route: 065
  6. ALVESCO [Suspect]
     Active Substance: CICLESONIDE
     Indication: Product used for unknown indication
     Dosage: 2 DF, DAILY (1 EVERY 1 DAYS)
     Route: 065
  7. ALVESCO [Suspect]
     Active Substance: CICLESONIDE
     Dosage: UNK
     Route: 055
  8. ADVAIR HFA [Suspect]
     Active Substance: FLUTICASONE PROPIONATE\SALMETEROL XINAFOATE
     Indication: Product used for unknown indication
     Dosage: 2 DF, BID (2 EVERY 1 DAYS)
  9. XOLAIR [Suspect]
     Active Substance: OMALIZUMAB
     Indication: Product used for unknown indication
     Dosage: UNK
     Route: 058
  10. XOLAIR [Suspect]
     Active Substance: OMALIZUMAB
     Dosage: UNK
  11. BRICANYL [Suspect]
     Active Substance: TERBUTALINE SULFATE
     Indication: Prophylaxis
     Dosage: UNK
     Route: 065
  12. BRICANYL [Suspect]
     Active Substance: TERBUTALINE SULFATE
     Dosage: UNK
  13. ELETRIPTAN HYDROBROMIDE [Concomitant]
     Active Substance: ELETRIPTAN HYDROBROMIDE
     Dosage: 40 MG, DAILY (1 EVERY 1 DAYS)
  14. NORTRIPTYLINE HYDROCHLORIDE [Concomitant]
     Active Substance: NORTRIPTYLINE HYDROCHLORIDE
     Dosage: 40 MG, DAILY (1 EVERY 1 DAYS)
  15. NORTRIPTYLINE HYDROCHLORIDE [Concomitant]
     Active Substance: NORTRIPTYLINE HYDROCHLORIDE
     Dosage: 40 MG, DAILY (1 EVERY 1 DAYS)
  16. CHOLESTYRAMINE [Concomitant]
     Active Substance: CHOLESTYRAMINE
  17. PREDNISONE [Concomitant]
     Active Substance: PREDNISONE
     Dosage: 40 MG, DAILY (1 EVERY 1 DAYS)
  18. PREGABALIN [Concomitant]
     Active Substance: PREGABALIN
     Indication: Product used for unknown indication
     Dosage: 150 MG, DAILY
  19. TOPIRAMATE [Concomitant]
     Active Substance: TOPIRAMATE
     Dosage: 32 MG, BID (2 EVERY 1 DAYS)
  20. VENLAFAXINE [Concomitant]
     Active Substance: VENLAFAXINE HYDROCHLORIDE
     Indication: Product used for unknown indication
     Route: 065
  21. VENLAFAXINE [Concomitant]
     Active Substance: VENLAFAXINE HYDROCHLORIDE
     Dosage: UNK

REACTIONS (6)
  - Asthma [Not Recovered/Not Resolved]
  - Blood test abnormal [Not Recovered/Not Resolved]
  - Drug ineffective [Not Recovered/Not Resolved]
  - Dyspnoea [Not Recovered/Not Resolved]
  - Nasal congestion [Not Recovered/Not Resolved]
  - Pleural rub [Not Recovered/Not Resolved]
